FAERS Safety Report 9535891 (Version 2)
Quarter: 2014Q2

REPORT INFORMATION
  Report Type: Spontaneous
  Country: US (occurrence: None)
  Receive Date: 20130507
  Receipt Date: 20140401
  Transmission Date: 20141212
  Serious: Yes (Other)
  Sender: FDA-Public Use
  Company Number: PHEH2013US001355

PATIENT
  Age: 88 Year
  Sex: Female

DRUGS (5)
  1. TASIGNA [Suspect]
     Indication: CHRONIC MYELOID LEUKAEMIA
     Dosage: UNK
     Dates: start: 20121226
  2. COMPAZINE (PROCHLORPERAZINE EDISYLATE) [Concomitant]
  3. CALTRATE (CALCIIUM CARBONATE) [Concomitant]
  4. PRAVASTATIN (PRAVASTATIN) [Concomitant]
  5. ASPIRIN (ACETYLSALICYLIC ACID) [Concomitant]

REACTIONS (3)
  - Atrial fibrillation [None]
  - Atrial flutter [None]
  - Palpitations [None]
